FAERS Safety Report 5578478-X (Version None)
Quarter: 2007Q4

REPORT INFORMATION
  Report Type: 
  Country: None (occurrence: None)
  Receive Date: 20071227
  Receipt Date: 20071218
  Transmission Date: 20080405
  Serious: No
  Sender: FDA-Public Use
  Company Number: 2007BI024434

PATIENT
  Age: 25 Year
  Sex: Male

DRUGS (5)
  1. AVONEX [Suspect]
     Indication: MULTIPLE SCLEROSIS
     Dosage: 30 UG; QW; IM
     Route: 030
     Dates: start: 20070501
  2. PARACETAMOL [Concomitant]
  3. TRAMADOL HCL [Concomitant]
  4. PREGABALIN [Concomitant]
  5. AMITRIPTYLINE HCL [Concomitant]

REACTIONS (3)
  - ABSCESS [None]
  - HYPERHIDROSIS [None]
  - INFECTION [None]
